FAERS Safety Report 5227997-4 (Version None)
Quarter: 2007Q1

REPORT INFORMATION
  Report Type: 
  Country: None (occurrence: None)
  Receive Date: 20061205
  Receipt Date: 20060930
  Transmission Date: 20070707
  Serious: No
  Sender: FDA-Public Use
  Company Number: PHEH2006US12524

PATIENT
  Age: 66 Year
  Sex: Female
  Weight: 63.5 kg

DRUGS (3)
  1. EXJADE [Suspect]
     Indication: IRON OVERLOAD
     Dosage: 1 G, QD
     Dates: start: 20060909
  2. CENTRUM (MINERALS NOS, VITAMINS NOS) [Concomitant]
  3. CEPHALEXIN [Concomitant]

REACTIONS (2)
  - DISCOMFORT [None]
  - RASH PRURITIC [None]
